FAERS Safety Report 5481368-4 (Version None)
Quarter: 2007Q4

REPORT INFORMATION
  Report Type: 
  Country: None (occurrence: None)
  Receive Date: 20071010
  Receipt Date: 20071001
  Transmission Date: 20080405
  Serious: Yes (Death, Hospitalization)
  Sender: FDA-Public Use
  Company Number: US-AVENTIS-200716972US

PATIENT
  Sex: Male

DRUGS (5)
  1. FUROSEMIDE [Suspect]
     Dosage: DOSE: UNK
     Dates: end: 20070801
  2. PLAVIX [Suspect]
     Indication: CARDIAC FAILURE CONGESTIVE
     Dosage: DOSE: UNK
  3. AMBIEN [Suspect]
     Indication: INSOMNIA
     Dosage: DOSE: UNK
     Dates: start: 20070827
  4. NAPROSYN [Suspect]
     Dosage: DOSE: UNK
     Dates: end: 20070801
  5. COLCHICINE [Suspect]
     Dosage: DOSE: UNK
     Dates: end: 20070801

REACTIONS (10)
  - ABNORMAL BEHAVIOUR [None]
  - CARDIAC FAILURE CONGESTIVE [None]
  - CONTUSION [None]
  - DISORIENTATION [None]
  - DYSPNOEA [None]
  - FALL [None]
  - HYDROTHORAX [None]
  - PERICARDIAL EFFUSION [None]
  - RENAL IMPAIRMENT [None]
  - RESTLESSNESS [None]
